FAERS Safety Report 9794661 (Version 2)
Quarter: 2014Q2

REPORT INFORMATION
  Report Type: Spontaneous
  Country: GB (occurrence: GB)
  Receive Date: 20140102
  Receipt Date: 20140421
  Transmission Date: 20141212
  Serious: Yes (Hospitalization)
  Sender: FDA-Public Use
  Company Number: GB-UCBSA-107510

PATIENT
  Age: 46 Year
  Sex: Male

DRUGS (2)
  1. KEPPRA [Suspect]
     Indication: CONVULSION
     Dosage: UNKNOWN DOSE
     Dates: start: 2013, end: 2013
  2. KEPPRA [Suspect]
     Indication: CONVULSION
     Dates: start: 201312

REACTIONS (4)
  - Dyspnoea [Unknown]
  - Dizziness [Unknown]
  - Pneumonia [Unknown]
  - Infection [Unknown]
